FAERS Safety Report 5672318-6 (Version None)
Quarter: 2008Q2

REPORT INFORMATION
  Report Type: 
  Country: None (occurrence: None)
  Receive Date: 20080219
  Receipt Date: 20071108
  Transmission Date: 20081010
  Serious: No
  Sender: FDA-Public Use
  Company Number: TPA2007A02319

PATIENT
  Age: 57 Year
  Sex: Female
  Weight: 61.6892 kg

DRUGS (7)
  1. ROZEREM [Suspect]
     Indication: INSOMNIA
     Dosage: 8 MG, QHS, PRN, PER ORAL ; 8 MG, AS REQUIRED, PER ORAL
     Route: 048
     Dates: start: 20051108
  2. LEVOTHYROXINE SODIUM [Concomitant]
  3. MUCINEX [Concomitant]
  4. ALLEGRA [Concomitant]
  5. CLONAZEPAM [Concomitant]
  6. NEXIUM [Concomitant]
  7. HYDOCODONE/TYLENOL (PARACETAMOL, HYDROCODONE) [Concomitant]

REACTIONS (2)
  - FEELING ABNORMAL [None]
  - LOSS OF DREAMING [None]
